FAERS Safety Report 6768874-7 (Version None)
Quarter: 2010Q2

REPORT INFORMATION
  Report Type: 
  Country: None (occurrence: None)
  Receive Date: 20100611
  Receipt Date: 20100603
  Transmission Date: 20101027
  Serious: Yes (Other)
  Sender: FDA-Public Use
  Company Number: 608049

PATIENT
  Age: 42 Year
  Sex: Female

DRUGS (3)
  1. OXALIPLATIN [Suspect]
     Indication: RECTOSIGMOID CANCER
     Dosage: 135 MG MILLIGRAM(S), 15 DAY, INTRAVENOUS
     Route: 042
  2. EMEND [Concomitant]
  3. ZOPHREN [Concomitant]

REACTIONS (3)
  - FACE OEDEMA [None]
  - OROPHARYNGEAL DISCOMFORT [None]
  - URTICARIA [None]
